FAERS Safety Report 11812368 (Version 2)
Quarter: 2015Q4

REPORT INFORMATION
  Report Type: Spontaneous
  Country: US (occurrence: US)
  Receive Date: 20151208
  Receipt Date: 20151217
  Transmission Date: 20160305
  Serious: Yes (Death, Hospitalization, Other)
  Sender: FDA-Public Use
  Company Number: US-ASTRAZENECA-2015SF21177

PATIENT
  Age: 63 Year
  Sex: Male

DRUGS (3)
  1. BRILINTA [Suspect]
     Active Substance: TICAGRELOR
     Route: 048
  2. ASPIRIN. [Concomitant]
     Active Substance: ASPIRIN
     Dosage: DAILY
  3. BRILINTA [Suspect]
     Active Substance: TICAGRELOR
     Route: 048

REACTIONS (4)
  - Cerebrovascular accident [Unknown]
  - Haemorrhage intracranial [Unknown]
  - Cerebral haemorrhage [Unknown]
  - Death [Fatal]

NARRATIVE: CASE EVENT DATE: 201511
